FAERS Safety Report 11744480 (Version 2)
Quarter: 2016Q1

REPORT INFORMATION
  Report Type: Spontaneous
  Country: US (occurrence: None)
  Receive Date: 20151116
  Receipt Date: 20160114
  Transmission Date: 20160525
  Serious: Yes (Hospitalization, Other)
  Sender: FDA-Public Use
  Company Number: US-MDT-ADR-2015-02162

PATIENT
  Age: 31 Year
  Sex: Male

DRUGS (1)
  1. BACLOFEN INTRATHECAL [Suspect]
     Active Substance: BACLOFEN
     Indication: MUSCLE SPASTICITY

REACTIONS (4)
  - Purulent discharge [None]
  - Medical device site haemorrhage [None]
  - Incision site infection [None]
  - Implant site infection [None]
